FAERS Safety Report 9393997 (Version 1)
Quarter: 2013Q3

REPORT INFORMATION
  Report Type: Spontaneous
  Country: US (occurrence: US)
  Receive Date: 20130710
  Receipt Date: 20130710
  Transmission Date: 20140515
  Serious: Yes (Other)
  Sender: FDA-Public Use
  Company Number: CHPA2013US010937

PATIENT
  Age: 81 Year
  Sex: Female

DRUGS (3)
  1. EXCEDRIN MIGRAINE [Suspect]
     Indication: MIGRAINE
     Dosage: UNK, PRN
  2. EXCEDRIN EXTRA STRENGTH [Suspect]
     Indication: PAIN
     Dosage: UNK, UNK
  3. EXCEDRIN EXTRA STRENGTH [Concomitant]
     Indication: PAIN
     Dosage: UNK, UNK

REACTIONS (5)
  - Myocardial ischaemia [Unknown]
  - Mouth injury [Unknown]
  - Facial bones fracture [Unknown]
  - Upper limb fracture [Unknown]
  - Foreign body [Unknown]
